FAERS Safety Report 5632311-6 (Version None)
Quarter: 2008Q1

REPORT INFORMATION
  Report Type: 
  Country: None (occurrence: None)
  Receive Date: 20080131
  Receipt Date: 20071008
  Transmission Date: 20080703
  Serious: No
  Sender: FDA-Public Use
  Company Number: 163-21880-07100206

PATIENT
  Age: 69 Year
  Sex: Female

DRUGS (1)
  1. REVLIMID [Suspect]
     Indication: 5Q-SYNDROME
     Dosage: 25 MG, 1 IN 1 D, ORAL
     Route: 048
     Dates: start: 20070927

REACTIONS (5)
  - ERYTHEMA [None]
  - HUNGER [None]
  - MUSCLE SPASMS [None]
  - RASH PRURITIC [None]
  - SWELLING FACE [None]
